FAERS Safety Report 13738822 (Version 1)
Quarter: 2017Q3

REPORT INFORMATION
  Report Type: Spontaneous
  Country: US (occurrence: US)
  Receive Date: 20170710
  Receipt Date: 20170710
  Transmission Date: 20171127
  Serious: Yes (Other)
  Sender: FDA-Public Use
  Company Number: US-PFIZER INC-2017294814

PATIENT
  Sex: Male

DRUGS (1)
  1. XELJANZ XR [Suspect]
     Active Substance: TOFACITINIB CITRATE
     Dosage: 11 MG, DAILY

REACTIONS (7)
  - Arthrodesis [Unknown]
  - Joint range of motion decreased [Unknown]
  - Joint crepitation [Unknown]
  - Joint swelling [Unknown]
  - Bone deformity [Unknown]
  - Joint effusion [Unknown]
  - Product use issue [Unknown]
